FAERS Safety Report 14233012 (Version 3)
Quarter: 2017Q4

REPORT INFORMATION
  Report Type: Report from Study
  Country: FR (occurrence: FR)
  Receive Date: 20171129
  Receipt Date: 20171204
  Transmission Date: 20180321
  Serious: Yes (Death, Other)
  Sender: FDA-Public Use
  Company Number: PHHY2017FR175958

PATIENT
  Sex: Female

DRUGS (2)
  1. AFINITOR [Suspect]
     Active Substance: EVEROLIMUS
     Indication: NEUROENDOCRINE TUMOUR
     Dosage: 10 MG, QD
     Route: 065
     Dates: start: 20130615, end: 20160215
  2. AFINITOR [Suspect]
     Active Substance: EVEROLIMUS
     Indication: SMALL INTESTINE CARCINOMA METASTATIC

REACTIONS (4)
  - Neuroendocrine tumour [Fatal]
  - Metastases to liver [Unknown]
  - Malignant neoplasm progression [Fatal]
  - Small intestine carcinoma metastatic [Fatal]

NARRATIVE: CASE EVENT DATE: 20161012
